FAERS Safety Report 26090685 (Version 1)
Quarter: 2025Q4

REPORT INFORMATION
  Report Type: Spontaneous
  Country: US (occurrence: US)
  Receive Date: 20251126
  Receipt Date: 20251126
  Transmission Date: 20260117
  Serious: Yes (Hospitalization)
  Sender: AUROBINDO
  Company Number: US-MLMSERVICE-20251106-PI702253-00145-1

PATIENT
  Age: 32 Year
  Sex: Male
  Weight: 105 kg

DRUGS (9)
  1. DEXMEDETOMIDINE [Suspect]
     Active Substance: DEXMEDETOMIDINE
     Indication: Induction of anaesthesia
     Dosage: 0.5 MICROGRAM/KILOGRAM, EVERY HOUR
     Route: 065
  2. FENTANYL [Suspect]
     Active Substance: FENTANYL
     Indication: Induction of anaesthesia
     Dosage: 50 MICROGRAM
     Route: 065
  3. PROPOFOL [Suspect]
     Active Substance: PROPOFOL
     Indication: Induction of anaesthesia
     Dosage: 50 MILLIGRAM
     Route: 065
  4. PROPOFOL [Suspect]
     Active Substance: PROPOFOL
     Dosage: 100 MICROGRAM/KILOGRAM
     Route: 065
  5. REMIFENTANIL [Suspect]
     Active Substance: REMIFENTANIL
     Indication: Induction of anaesthesia
     Dosage: 0.03 MICROGRAM/KILOGRAM
     Route: 065
  6. BUPIVACAINE [Concomitant]
     Active Substance: BUPIVACAINE
     Indication: Nerve block
     Dosage: 0.5% BUPIVACAINE WITH 1:200 000 EPINEPHRINE ON THE OPERATIVE (LEFT) SIDE
     Route: 065
  7. EPINEPHRINE [Concomitant]
     Active Substance: EPINEPHRINE
     Indication: Product used for unknown indication
     Dosage: 0.5% BUPIVACAINE WITH 1:200 000 EPINEPHRINE ON THE OPERATIVE (LEFT) SIDE0.25% BUPIVACAINE WITH 1:200 000 EPINEPHRINE ON THE OPERATIVE (RIGHT) SIDE
     Route: 065
  8. BUPIVACAINE [Concomitant]
     Active Substance: BUPIVACAINE
     Indication: Nerve block
     Dosage: 0.25% BUPIVACAINE WITH 1:200 000 EPINEPHRINE ON THE OPERATIVE (RIGHT) SIDE
     Route: 065
  9. OXYGEN [Concomitant]
     Active Substance: OXYGEN
     Indication: Product used for unknown indication
     Dosage: RECEIVING OXYGEN AT 6 L/MIN VIA NASAL CANNULA (FIO2 30%)

REACTIONS (1)
  - Oxygen saturation decreased [Recovered/Resolved]
